FAERS Safety Report 9451053 (Version 1)
Quarter: 2013Q3

REPORT INFORMATION
  Report Type: Spontaneous
  Country: NL (occurrence: NL)
  Receive Date: 20130809
  Receipt Date: 20130809
  Transmission Date: 20140515
  Serious: Yes (Other)
  Sender: FDA-Public Use
  Company Number: NL-ABBOTT-13P-114-1128779-00

PATIENT
  Age: 52 Year
  Sex: Male

DRUGS (1)
  1. HUMIRA [Suspect]
     Indication: CROHN^S DISEASE
     Route: 058

REACTIONS (1)
  - Systemic lupus erythematosus [Not Recovered/Not Resolved]
